FAERS Safety Report 10222254 (Version 1)
Quarter: 2014Q1

REPORT INFORMATION
  Report Type: Spontaneous
  Country: US (occurrence: None)
  Receive Date: 20140306
  Receipt Date: 20140306
  Transmission Date: 20141002
  Serious: Yes (Hospitalization)
  Sender: FDA-Public Use
  Company Number: 163-21880-13050062

PATIENT
  Age: 72 Year
  Sex: Female

DRUGS (2)
  1. REVLIMID ( LENALIDOMIDE) ( 25 MILLIGRAM, CAPSULES) [Suspect]
     Indication: PLASMA CELL MYELOMA
     Dosage: 25 MG, 21 IN 28 D, PO
     Route: 048
     Dates: start: 201303
  2. DEXAMETHASONE ( DEXAMETHASONE) (UNKNOWN) [Concomitant]

REACTIONS (1)
  - Gastrointestinal haemorrhage [None]
